FAERS Safety Report 17078905 (Version 1)
Quarter: 2019Q4

REPORT INFORMATION
  Report Type: Spontaneous
  Country: US (occurrence: US)
  Receive Date: 20191127
  Receipt Date: 20191127
  Transmission Date: 20200122
  Serious: Yes (Other)
  Sender: FDA-Public Use
  Company Number: US-CELGENEUS-USA-20191108371

PATIENT
  Sex: Male
  Weight: 69 kg

DRUGS (1)
  1. REVLIMID [Suspect]
     Active Substance: LENALIDOMIDE
     Indication: HODGKIN^S DISEASE
     Dosage: 15 MILLIGRAM
     Route: 048
     Dates: start: 201910

REACTIONS (1)
  - Hypersensitivity [Recovered/Resolved]
